FAERS Safety Report 4565092-8 (Version None)
Quarter: 2005Q1

REPORT INFORMATION
  Report Type: 
  Country: None (occurrence: None)
  Receive Date: 20050126
  Receipt Date: 20050110
  Transmission Date: 20050727
  Serious: Yes (Hospitalization)
  Sender: FDA-Public Use
  Company Number: 2005AC00058

PATIENT
  Age: 32 Year
  Sex: Female

DRUGS (3)
  1. LIDOCAINE [Suspect]
     Indication: EPIDURAL ANAESTHESIA
  2. FENTANIL [Suspect]
     Indication: EPIDURAL ANAESTHESIA
  3. POLARAMINE [Suspect]
     Indication: HYPERSENSITIVITY

REACTIONS (10)
  - AKATHISIA [None]
  - DIZZINESS [None]
  - DRUG HYPERSENSITIVITY [None]
  - DYSKINESIA [None]
  - DYSPNOEA [None]
  - HYPOTENSION [None]
  - PARAESTHESIA [None]
  - RHABDOMYOLYSIS [None]
  - SKIN TEST POSITIVE [None]
  - TINNITUS [None]
